FAERS Safety Report 6837403-1 (Version None)
Quarter: 2010Q3

REPORT INFORMATION
  Report Type: 
  Country: None (occurrence: None)
  Receive Date: 20100713
  Receipt Date: 20070512
  Transmission Date: 20110219
  Serious: No
  Sender: FDA-Public Use
  Company Number: US-PFIZER INC-2007039209

PATIENT
  Sex: Female
  Weight: 72.6 kg

DRUGS (4)
  1. CHANTIX [Suspect]
     Indication: SMOKING CESSATION THERAPY
     Dates: start: 20061101
  2. ANODYNE [Suspect]
     Indication: PAIN
     Dates: start: 20060901
  3. VALSARTAN [Concomitant]
  4. SIMVASTATIN [Concomitant]

REACTIONS (4)
  - ABNORMAL DREAMS [None]
  - ARTHRALGIA [None]
  - PAIN IN EXTREMITY [None]
  - SLEEP DISORDER [None]
